FAERS Safety Report 15696774 (Version 5)
Quarter: 2019Q2

REPORT INFORMATION
  Report Type: Spontaneous
  Country: US (occurrence: US)
  Receive Date: 20181206
  Receipt Date: 20190426
  Transmission Date: 20190711
  Serious: Yes (Hospitalization, Other)
  Sender: FDA-Public Use
  Company Number: US-PFIZER INC-2018381051

PATIENT
  Age: 81 Year
  Sex: Male
  Weight: 88 kg

DRUGS (4)
  1. XELJANZ [Suspect]
     Active Substance: TOFACITINIB CITRATE
     Dosage: 10 MG, 2X/DAY
     Route: 048
     Dates: start: 20190223, end: 201902
  2. XELJANZ [Suspect]
     Active Substance: TOFACITINIB CITRATE
     Indication: COLITIS ULCERATIVE
     Dosage: 20 MG, 1X/DAY
     Route: 048
  3. XELJANZ [Suspect]
     Active Substance: TOFACITINIB CITRATE
     Dosage: 10 MG, 2X/DAY (TWICE DAILY)
     Route: 048
     Dates: end: 20190301
  4. XELJANZ [Suspect]
     Active Substance: TOFACITINIB CITRATE
     Indication: RHEUMATOID ARTHRITIS
     Dosage: 10 MG, 2X/DAY (TWICE DAILY) ((UP TO 28 DAYS, 56 TABLETS), 5 REFILLS)
     Route: 048
     Dates: start: 201810, end: 201811

REACTIONS (11)
  - Product dose omission [Unknown]
  - Malaise [Recovering/Resolving]
  - Peripheral swelling [Not Recovered/Not Resolved]
  - Cough [Unknown]
  - Urinary incontinence [Not Recovered/Not Resolved]
  - Chills [Unknown]
  - Pulmonary thrombosis [Unknown]
  - Anal incontinence [Not Recovered/Not Resolved]
  - Vomiting [Recovered/Resolved]
  - Somnolence [Unknown]
  - Nausea [Unknown]

NARRATIVE: CASE EVENT DATE: 201811
